FAERS Safety Report 21988825 (Version 2)
Quarter: 2023Q1

REPORT INFORMATION
  Report Type: Spontaneous
  Country: DE (occurrence: DE)
  Receive Date: 20230214
  Receipt Date: 20230220
  Transmission Date: 20230418
  Serious: Yes (Death, Hospitalization, Other)
  Sender: FDA-Public Use
  Company Number: DE-ROCHE-3281240

PATIENT
  Age: 59 Year
  Sex: Male

DRUGS (4)
  1. RITUXIMAB [Suspect]
     Active Substance: RITUXIMAB
     Indication: Follicular lymphoma
     Dosage: 375 MG/M2
     Route: 042
     Dates: start: 20211014, end: 20211202
  2. ETOPOSIDE [Suspect]
     Active Substance: ETOPOSIDE
     Indication: Follicular lymphoma
     Dosage: 100 MG/M2
     Route: 042
     Dates: start: 20211014, end: 20211202
  3. CARBOPLATIN [Suspect]
     Active Substance: CARBOPLATIN
     Indication: Follicular lymphoma
     Dosage: UNK (4 AUC)
     Route: 042
     Dates: start: 20211014, end: 20211202
  4. IFOSFAMIDE [Suspect]
     Active Substance: IFOSFAMIDE
     Indication: Follicular lymphoma
     Dosage: 500 MG/M2
     Route: 042
     Dates: start: 20211014, end: 20211202

REACTIONS (13)
  - Multiple organ dysfunction syndrome [Fatal]
  - Acute kidney injury [Unknown]
  - Infection [Unknown]
  - Lymphoma [Unknown]
  - Thrombotic microangiopathy [Unknown]
  - Atypical haemolytic uraemic syndrome [Unknown]
  - Renal impairment [Unknown]
  - Pancytopenia [Unknown]
  - Generalised oedema [Unknown]
  - General physical health deterioration [Unknown]
  - Myopathy [Unknown]
  - C-reactive protein increased [Unknown]
  - Hyponatraemia [Unknown]

NARRATIVE: CASE EVENT DATE: 20220330
